FAERS Safety Report 5811733-4 (Version None)
Quarter: 2008Q3

REPORT INFORMATION
  Report Type: 
  Country: None (occurrence: None)
  Receive Date: 20080716
  Receipt Date: 20080710
  Transmission Date: 20090109
  Serious: Yes (Life-Threatening)
  Sender: FDA-Public Use
  Company Number: B0526711A

PATIENT
  Age: 14 Year
  Sex: Male
  Weight: 61 kg

DRUGS (1)
  1. MODACIN [Suspect]
     Indication: APPENDICITIS
     Dosage: 1G THREE TIMES PER DAY
     Route: 042
     Dates: start: 20080530, end: 20080530

REACTIONS (6)
  - ANAPHYLACTIC SHOCK [None]
  - COUGH [None]
  - DYSPNOEA [None]
  - GENERALISED ERYTHEMA [None]
  - LACRIMATION INCREASED [None]
  - RHINORRHOEA [None]
